FAERS Safety Report 18723865 (Version 1)
Quarter: 2021Q1

REPORT INFORMATION
  Report Type: Spontaneous
  Country: US (occurrence: US)
  Receive Date: 20210110
  Receipt Date: 20210110
  Transmission Date: 20210419
  Serious: Yes (Other)
  Sender: FDA-Public Use
  Company Number: None

PATIENT
  Age: 23 Year
  Sex: Female
  Weight: 63 kg

DRUGS (4)
  1. LAMOTRIGINE. [Concomitant]
     Active Substance: LAMOTRIGINE
  2. ADDERALL [Suspect]
     Active Substance: AMPHETAMINE ASPARTATE\AMPHETAMINE SULFATE\DEXTROAMPHETAMINE SACCHARATE\DEXTROAMPHETAMINE SULFATE
  3. KASHI GO KETO?FRIENDLY GRAIN?FREE CINNAMON VANILLA [DIETARY SUPPLEMENT\PSICOSE, DL?] [Suspect]
     Active Substance: DIETARY SUPPLEMENT\PSICOSE, DL-
     Indication: COELIAC DISEASE
     Route: 048
     Dates: start: 20210104, end: 20210110
  4. ALBUTEROL INHALER [Concomitant]
     Active Substance: ALBUTEROL

REACTIONS (5)
  - Fatigue [None]
  - Food interaction [None]
  - Disturbance in attention [None]
  - Hunger [None]
  - Depressed mood [None]

NARRATIVE: CASE EVENT DATE: 20210104
